FAERS Safety Report 8116802-4 (Version None)
Quarter: 2012Q1

REPORT INFORMATION
  Report Type: 
  Country: None (occurrence: None)
  Receive Date: 20120206
  Receipt Date: 20120201
  Transmission Date: 20120608
  Serious: Yes (Death)
  Sender: FDA-Public Use
  Company Number: PHHY2011CA110920

PATIENT
  Sex: Male

DRUGS (7)
  1. PANTOPRAZOLE SODIUM [Concomitant]
     Dosage: 40 MG, UNK
  2. ZOLEDRONOC ACID [Suspect]
     Dosage: UNK UKN, UNK
     Route: 042
     Dates: start: 20100318
  3. DIGOXIN [Concomitant]
     Dosage: 62.5 UG, UNK
  4. ATACAND [Concomitant]
     Dosage: 8 MG, UNK
  5. WARFARIN SODIUM [Concomitant]
     Dosage: UNK UKN, UNK
  6. GALANTAMINE HYDROBROMIDE [Concomitant]
     Dosage: 16 MG, UNK
  7. ZOLEDRONOC ACID [Suspect]
     Indication: OSTEOPOROSIS
     Dosage: UNK UKN, UNK
     Route: 042
     Dates: start: 20090319

REACTIONS (1)
  - AORTIC ANEURYSM RUPTURE [None]
